FAERS Safety Report 6173646-0 (Version None)
Quarter: 2009Q2

REPORT INFORMATION
  Report Type: 
  Country: None (occurrence: None)
  Receive Date: 20090430
  Receipt Date: 20090421
  Transmission Date: 20091009
  Serious: Yes (Hospitalization, Other)
  Sender: FDA-Public Use
  Company Number: US-MERCK-0703USA01960

PATIENT
  Age: 67 Year
  Sex: Female
  Weight: 42 kg

DRUGS (16)
  1. FOSAMAX [Suspect]
     Indication: OSTEOPOROSIS
     Route: 048
     Dates: start: 19990701
  2. FOSAMAX [Suspect]
     Route: 048
     Dates: start: 20010105, end: 20060607
  3. FOSAMAX [Suspect]
     Route: 048
     Dates: end: 20010105
  4. FOSAMAX [Suspect]
     Route: 065
     Dates: start: 20000827
  5. PREDNISONE [Concomitant]
     Route: 065
     Dates: start: 19871201
  6. REMICADE [Concomitant]
     Route: 065
     Dates: start: 20010815, end: 20060223
  7. LISINOPRIL [Concomitant]
     Route: 065
  8. DIPYRONE [Concomitant]
     Route: 065
  9. EVISTA [Concomitant]
     Route: 065
  10. NORVASC [Concomitant]
     Route: 065
  11. LEFLUNOMIDE [Concomitant]
     Route: 065
  12. PANCREASE (PANCREATIN) [Concomitant]
     Route: 065
  13. [THERAPY UNSPECIFIED] [Concomitant]
     Route: 065
  14. LUMIGAN [Concomitant]
     Route: 047
  15. BRIMONIDINE TARTRATE [Concomitant]
     Route: 065
  16. VOLTAREN [Concomitant]
     Route: 047

REACTIONS (27)
  - ARTHROPATHY [None]
  - BONE DENSITY DECREASED [None]
  - CARPAL TUNNEL SYNDROME [None]
  - CATARACT [None]
  - CLOSTRIDIUM DIFFICILE COLITIS [None]
  - DEEP VEIN THROMBOSIS [None]
  - DRUG ADMINISTRATION ERROR [None]
  - ELECTROCARDIOGRAM CHANGE [None]
  - FATIGUE [None]
  - FISTULA DISCHARGE [None]
  - GENITAL DISCHARGE [None]
  - GOITRE [None]
  - HERPES ZOSTER [None]
  - INFLUENZA [None]
  - NAUSEA [None]
  - OPEN WOUND [None]
  - ORAL CANDIDIASIS [None]
  - OSTEOMYELITIS [None]
  - OSTEONECROSIS [None]
  - PEMPHIGOID [None]
  - RETINAL DETACHMENT [None]
  - SYNOVIAL CYST [None]
  - SYNOVITIS [None]
  - TENOSYNOVITIS [None]
  - THYROIDITIS [None]
  - TOOTH ABSCESS [None]
  - WRIST FRACTURE [None]
